FAERS Safety Report 9510439 (Version 1)
Quarter: 2013Q3

REPORT INFORMATION
  Report Type: Spontaneous
  Country: US (occurrence: US)
  Receive Date: 20130909
  Receipt Date: 20130909
  Transmission Date: 20140515
  Serious: No
  Sender: FDA-Public Use
  Company Number: US-PFIZER INC-2013256260

PATIENT
  Age: 66 Year
  Sex: Female
  Weight: 53.52 kg

DRUGS (3)
  1. XANAX [Suspect]
     Indication: ANXIETY
     Dosage: 1 MG, 4X/DAY
     Route: 048
  2. LORTAB [Concomitant]
     Indication: FIBROMYALGIA
     Dosage: UNK
  3. AMBIEN [Concomitant]
     Indication: SLEEP DISORDER
     Dosage: UNK, 1X/DAY

REACTIONS (6)
  - Depression [Unknown]
  - Upper limb fracture [Unknown]
  - Insomnia [Unknown]
  - Constipation [Unknown]
  - Stress [Unknown]
  - Drug tolerance [Unknown]
